FAERS Safety Report 4586435-5 (Version None)
Quarter: 2005Q1

REPORT INFORMATION
  Report Type: 
  Country: None (occurrence: None)
  Receive Date: 20050218
  Receipt Date: 20050208
  Transmission Date: 20050727
  Serious: Yes (Other)
  Sender: FDA-Public Use
  Company Number: US-JNJFOC-20050202969

PATIENT
  Age: 58 Year
  Sex: Male

DRUGS (1)
  1. REMICADE [Suspect]
     Indication: DRUG USE FOR UNKNOWN INDICATION
     Route: 042

REACTIONS (4)
  - DYSPNOEA [None]
  - FEELING COLD [None]
  - INFUSION RELATED REACTION [None]
  - OROPHARYNGEAL SWELLING [None]
